FAERS Safety Report 13869705 (Version 4)
Quarter: 2022Q3

REPORT INFORMATION
  Report Type: Spontaneous
  Country: GB (occurrence: GB)
  Receive Date: 20170815
  Receipt Date: 20220715
  Transmission Date: 20221026
  Serious: Yes (Hospitalization, Other)
  Sender: FDA-Public Use
  Company Number: GB-VIIV HEALTHCARE LIMITED-GB2017GSK124818

PATIENT

DRUGS (1)
  1. TRIUMEQ [Suspect]
     Active Substance: ABACAVIR SULFATE\DOLUTEGRAVIR SODIUM\LAMIVUDINE
     Indication: HIV test positive
     Dosage: 1 DF, QD
     Route: 048
     Dates: start: 20160930, end: 20170727

REACTIONS (7)
  - Drug-induced liver injury [Recovered/Resolved]
  - Gastrooesophageal reflux disease [Unknown]
  - Liver function test abnormal [Unknown]
  - Hypersensitivity [Recovered/Resolved]
  - Constipation [Unknown]
  - Hospitalisation [Unknown]
  - Jaundice [Unknown]

NARRATIVE: CASE EVENT DATE: 20170726
